FAERS Safety Report 7022927-7 (Version None)
Quarter: 2010Q3

REPORT INFORMATION
  Report Type: 
  Country: None (occurrence: None)
  Receive Date: 20100930
  Receipt Date: 20100924
  Transmission Date: 20110219
  Serious: Yes (Hospitalization)
  Sender: FDA-Public Use
  Company Number: CHPA2010GB15156

PATIENT
  Age: 69 Year
  Sex: Female

DRUGS (6)
  1. IBUPROFEN (NGX) [Suspect]
     Indication: ARTHRITIS
     Dosage: 400 MG, TID
     Route: 048
     Dates: start: 19860101, end: 20020101
  2. IBUPROFEN (NGX) [Suspect]
     Dosage: 600 MG, TID
     Route: 048
     Dates: start: 20020101, end: 20040702
  3. VIOXX [Suspect]
     Indication: ARTHRITIS
     Dosage: 25 MG, QD
     Route: 048
     Dates: start: 20040622, end: 20040702
  4. LIPITOR [Concomitant]
     Dosage: UNK, UNK
     Route: 048
     Dates: start: 20000101
  5. LIPITOR [Concomitant]
     Dosage: 40 MG, QD
     Route: 048
  6. PARACETAMOL [Concomitant]
     Dosage: UNK, UNK
     Route: 048

REACTIONS (5)
  - DYSPNOEA [None]
  - GASTROINTESTINAL ULCER [None]
  - OESOPHAGITIS [None]
  - OVERDOSE [None]
  - SYNCOPE [None]
